FAERS Safety Report 12084547 (Version 1)
Quarter: 2016Q1

REPORT INFORMATION
  Report Type: Spontaneous
  Country: US (occurrence: US)
  Receive Date: 20160217
  Receipt Date: 20160217
  Transmission Date: 20160526
  Serious: Yes (Hospitalization, Other)
  Sender: FDA-Public Use
  Company Number: US-PFIZER INC-2016092613

PATIENT
  Age: 80 Year
  Sex: Female
  Weight: 51 kg

DRUGS (2)
  1. PREMARIN [Suspect]
     Active Substance: ESTROGENS, CONJUGATED
     Dosage: 1.25 MG, (SHE THINKS ONCE DAILY)
  2. PREMARIN [Suspect]
     Active Substance: ESTROGENS, CONJUGATED
     Indication: HOT FLUSH
     Dosage: 0.625 MG, (SHE THINKS ONCE DAILY)
     Dates: start: 1967

REACTIONS (10)
  - Depressed mood [Unknown]
  - Lung neoplasm malignant [Unknown]
  - Pain in extremity [Unknown]
  - Thrombosis [Unknown]
  - Cardiac valve disease [Unknown]
  - Dyspnoea [Unknown]
  - Decreased appetite [Unknown]
  - Blood pressure increased [Unknown]
  - Drug ineffective [Unknown]
  - Pulmonary mass [Unknown]
